FAERS Safety Report 8575493-9 (Version None)
Quarter: 2012Q3

REPORT INFORMATION
  Report Type: 
  Country: None (occurrence: None)
  Receive Date: 20120807
  Receipt Date: 20120731
  Transmission Date: 20120928
  Serious: Yes (Hospitalization)
  Sender: FDA-Public Use
  Company Number: US-ELI_LILLY_AND_COMPANY-US201208000563

PATIENT
  Sex: Female

DRUGS (7)
  1. PREVACID [Concomitant]
     Dosage: UNK, QD
  2. CRESTOR [Concomitant]
     Dosage: UNK UNK, QD
  3. SYNTHROID [Concomitant]
     Dosage: UNK, QD
  4. GABAPENTIN [Concomitant]
     Indication: BACK PAIN
     Dosage: 300 MG, PRN
  5. FORTEO [Suspect]
     Indication: OSTEOPOROSIS
     Dosage: 20 UG, QD
     Dates: start: 20110501, end: 20110801
  6. PLAVIX [Concomitant]
     Dosage: UNK UNK, QD
  7. LUNESTA [Concomitant]
     Indication: SLEEP DISORDER
     Dosage: UNK

REACTIONS (2)
  - PROCEDURAL PAIN [None]
  - SURGERY [None]
